FAERS Safety Report 11893879 (Version 1)
Quarter: 2016Q1

REPORT INFORMATION
  Report Type: Spontaneous
  Country: FR (occurrence: FR)
  Receive Date: 20160107
  Receipt Date: 20160107
  Transmission Date: 20160526
  Serious: Yes (Hospitalization)
  Sender: FDA-Public Use
  Company Number: FR-BRISTOL-MYERS SQUIBB COMPANY-10888824

PATIENT
  Sex: Female

DRUGS (10)
  1. SALBUTAMOL [Concomitant]
     Active Substance: ALBUTEROL
     Indication: PRODUCT USED FOR UNKNOWN INDICATION
     Route: 065
  2. INVIRASE [Suspect]
     Active Substance: SAQUINAVIR MESYLATE
     Indication: HIV INFECTION
     Route: 065
  3. CELESTENE [Concomitant]
     Active Substance: BETAMETHASONE
     Indication: PRODUCT USED FOR UNKNOWN INDICATION
     Route: 065
  4. CLAMOXYL [Concomitant]
     Active Substance: AMOXICILLIN\CLAVULANIC ACID
     Indication: PRODUCT USED FOR UNKNOWN INDICATION
     Route: 065
  5. VIRAMUNE [Suspect]
     Active Substance: NEVIRAPINE
     Indication: HIV INFECTION
     Route: 065
  6. I RON [Concomitant]
     Active Substance: FERROUS FUMARATE
     Indication: PRODUCT USED FOR UNKNOWN INDICATION
     Route: 065
  7. VIDEX [Suspect]
     Active Substance: DIDANOSINE
     Indication: HIV INFECTION
     Dosage: UNK
     Route: 048
  8. NORVIR [Suspect]
     Active Substance: RITONAVIR
     Indication: HIV INFECTION
     Route: 065
  9. BACTRIM [Concomitant]
     Active Substance: SULFAMETHOXAZOLE\TRIMETHOPRIM
     Indication: PRODUCT USED FOR UNKNOWN INDICATION
     Route: 065
  10. SPECIAFOLDINE [Concomitant]
     Active Substance: FOLIC ACID
     Indication: PRODUCT USED FOR UNKNOWN INDICATION
     Route: 065

REACTIONS (6)
  - Anaemia [Unknown]
  - Premature labour [Unknown]
  - Dyspnoea [Unknown]
  - Pregnancy [Recovered/Resolved]
  - Premature delivery [Unknown]
  - Caesarean section [Unknown]

NARRATIVE: CASE EVENT DATE: 20010305
